FAERS Safety Report 11994910 (Version 1)
Quarter: 2016Q1

REPORT INFORMATION
  Report Type: Spontaneous
  Country: US (occurrence: US)
  Receive Date: 20160203
  Receipt Date: 20160203
  Transmission Date: 20160526
  Serious: Yes (Hospitalization)
  Sender: FDA-Public Use
  Company Number: US-UCBSA-115436

PATIENT
  Age: 25 Year
  Sex: Female
  Weight: 68.48 kg

DRUGS (2)
  1. KEPPRA XR [Suspect]
     Active Substance: LEVETIRACETAM
     Indication: EPILEPSY
     Dosage: 750 MG, 4X/DAY (QID)
     Route: 048
     Dates: start: 2010, end: 2014
  2. KEPPRA XR [Suspect]
     Active Substance: LEVETIRACETAM
     Indication: CONVULSION PROPHYLAXIS
     Dosage: 3500 MG, ONCE DAILY (QD)
     Route: 048
     Dates: start: 2014

REACTIONS (4)
  - Partial seizures with secondary generalisation [Recovered/Resolved]
  - Off label use [Unknown]
  - Overdose [Unknown]
  - Pregnancy [Unknown]

NARRATIVE: CASE EVENT DATE: 201312
